FAERS Safety Report 9972324 (Version 1)
Quarter: 2014Q1

REPORT INFORMATION
  Report Type: Spontaneous
  Country: US (occurrence: None)
  Receive Date: 20140305
  Receipt Date: 20140305
  Transmission Date: 20141002
  Serious: Yes (Hospitalization, Other)
  Sender: FDA-Public Use
  Company Number: None

PATIENT
  Age: 57 Year
  Sex: Male

DRUGS (15)
  1. SULFAMETHOXAZOLE-TRIMETHOPRIM, DS [Suspect]
     Indication: PNEUMOCYSTIS JIROVECII PNEUMONIA
     Route: 048
  2. ACETAMINOPHEN [Concomitant]
  3. AZITHROMYCIN [Concomitant]
  4. BUDESONIDE [Concomitant]
  5. DEXTROSE [Concomitant]
  6. EMTRICITABINE/TENOFOVIR [Concomitant]
  7. ETRAVIRINE [Concomitant]
  8. HEPARIN [Concomitant]
  9. IPRATROPIUM/ALBUTEROL [Concomitant]
  10. MONTELUKAST [Concomitant]
  11. PANTOPRAZOLE [Concomitant]
  12. RALTEGRAVIR [Concomitant]
  13. SODIUM CHLORIDE [Concomitant]
  14. VANCOMYCIN [Concomitant]
  15. PIPERACILLIN-TAZOBACTAM [Concomitant]

REACTIONS (2)
  - Hyponatraemia [None]
  - Hypokalaemia [None]
